FAERS Safety Report 24312123 (Version 1)
Quarter: 2024Q3

REPORT INFORMATION
  Report Type: Spontaneous
  Country: US (occurrence: US)
  Receive Date: 20240912
  Receipt Date: 20240912
  Transmission Date: 20241017
  Serious: No
  Sender: APOTEX
  Company Number: US-APOTEX-2024AP010180

PATIENT
  Age: 3 Year
  Sex: Male

DRUGS (3)
  1. SIROLIMUS [Suspect]
     Active Substance: SIROLIMUS
     Indication: Autoimmune lymphoproliferative syndrome
     Dosage: 2.3 MILLIGRAM/SQ. METER, SINCE DAY 12 TO DAY 143 OF STARTING SIROLIMUS
     Route: 065
  2. SIROLIMUS [Suspect]
     Active Substance: SIROLIMUS
     Dosage: 2.9 MILLIGRAM/SQ. METER, SINCE DAY 144 TO DAY 235 OF STARTING SIROLIMUS
     Route: 065
  3. SIROLIMUS [Suspect]
     Active Substance: SIROLIMUS
     Dosage: 3.6 MILLIGRAM/SQ. METER, SINCE DAY 236 TO DAY 245 OF STARTING SIROLIMUS
     Route: 065

REACTIONS (5)
  - Low density lipoprotein increased [Unknown]
  - Toxicity to various agents [Unknown]
  - Blood triglycerides increased [Not Recovered/Not Resolved]
  - Blood cholesterol increased [Unknown]
  - Hypertension [Unknown]
